FAERS Safety Report 6941128-1 (Version None)
Quarter: 2010Q3

REPORT INFORMATION
  Report Type: 
  Country: None (occurrence: None)
  Receive Date: 20100825
  Receipt Date: 20100507
  Transmission Date: 20110219
  Serious: No
  Sender: FDA-Public Use
  Company Number: US-BRISTOL-MYERS SQUIBB COMPANY-15097652

PATIENT
  Sex: Female

DRUGS (1)
  1. ONGLYZA [Suspect]
     Route: 048

REACTIONS (1)
  - BLOOD GLUCOSE ABNORMAL [None]
